FAERS Safety Report 8908962 (Version 1)
Quarter: 2012Q4

REPORT INFORMATION
  Report Type: Report from Study
  Country: JP (occurrence: JP)
  Receive Date: 20121114
  Receipt Date: 20121114
  Transmission Date: 20130627
  Serious: Yes (Other)
  Sender: FDA-Public Use
  Company Number: JP-VERTEX PHARMACEUTICAL INC.-AE-2012-004507

PATIENT
  Age: 61 Year
  Sex: Female

DRUGS (8)
  1. VX-950 (TELAPREVIR) [Suspect]
     Indication: CHRONIC HEPATITIS C
     Dosage: 2250 mg, qd
     Route: 048
     Dates: start: 20111221, end: 20111226
  2. VX-950 (TELAPREVIR) [Suspect]
     Dosage: 1500 mg, qd
     Route: 048
     Dates: start: 20111226, end: 20120227
  3. VX-950 (TELAPREVIR) [Suspect]
     Dosage: 750 mg, qd
     Route: 048
     Dates: start: 20120228, end: 20120320
  4. REBETOL [Suspect]
     Indication: CHRONIC HEPATITIS C
     Dosage: 400 mg, qd
     Route: 048
     Dates: start: 20111213, end: 20120117
  5. REBETOL [Suspect]
     Dosage: 200 mg, qd
     Route: 048
     Dates: start: 20120117
  6. PEGINTRON                          /01543001/ [Suspect]
     Indication: CHRONIC HEPATITIS C
     Dosage: 1.5 ?g/kg, qw
     Route: 058
     Dates: start: 20111213
  7. URSO                               /00465701/ [Concomitant]
     Dosage: 600 mg, qd
     Route: 048
     Dates: end: 20120117
  8. MYSLEE [Concomitant]
     Dosage: 10 mg, qd
     Route: 048

REACTIONS (1)
  - White blood cell count decreased [Recovered/Resolved]
